FAERS Safety Report 9908699 (Version 1)
Quarter: 2014Q1

REPORT INFORMATION
  Report Type: Spontaneous
  Country: US (occurrence: US)
  Receive Date: 20140219
  Receipt Date: 20140219
  Transmission Date: 20141002
  Serious: No
  Sender: FDA-Public Use
  Company Number: US-PFIZER INC-2014043832

PATIENT
  Age: 65 Year
  Sex: Male
  Weight: 79.82 kg

DRUGS (2)
  1. VIAGRA [Suspect]
     Indication: ERECTILE DYSFUNCTION
     Dosage: 50 MG, UNK
  2. VIAGRA [Suspect]
     Dosage: 100 MG, UNK

REACTIONS (1)
  - Drug ineffective [Unknown]
